FAERS Safety Report 23494525 (Version 1)
Quarter: 2024Q1

REPORT INFORMATION
  Report Type: Spontaneous
  Country: US (occurrence: US)
  Receive Date: 20240207
  Receipt Date: 20240207
  Transmission Date: 20240409
  Serious: No
  Sender: FDA-Public Use
  Company Number: US-Covis Pharma GmbH-2024COV00123

PATIENT
  Sex: Male

DRUGS (4)
  1. RILUZOLE [Suspect]
     Active Substance: RILUZOLE
     Route: 048
  2. RADICAVA ORS [Suspect]
     Active Substance: EDARAVONE
     Indication: Amyotrophic lateral sclerosis
     Dosage: DAILY FOR 14 DAYS ON, THEN 14 DAYS OFF.
     Route: 048
     Dates: start: 202401
  3. RELYVRIO [Suspect]
     Active Substance: SODIUM PHENYLBUTYRATE\TAURURSODIOL
     Dosage: QD FOR 3 WEEKS THEN 2 TIMES A DAY THEREAFTER.
  4. RELYVRIO [Suspect]
     Active Substance: SODIUM PHENYLBUTYRATE\TAURURSODIOL

REACTIONS (5)
  - Diarrhoea [Recovered/Resolved]
  - Gingival pain [Recovering/Resolving]
  - Toothache [Recovering/Resolving]
  - Abdominal discomfort [Recovered/Resolved]
  - Constipation [Unknown]
